FAERS Safety Report 15009149 (Version 1)
Quarter: 2018Q2

REPORT INFORMATION
  Report Type: Spontaneous
  Country: US (occurrence: US)
  Receive Date: 20180614
  Receipt Date: 20180614
  Transmission Date: 20180711
  Serious: No
  Sender: FDA-Public Use
  Company Number: US-ASTRAZENECA-2018SE67989

PATIENT
  Sex: Female

DRUGS (1)
  1. SYMBICORT [Suspect]
     Active Substance: BUDESONIDE\FORMOTEROL FUMARATE DIHYDRATE
     Indication: ASTHMA
     Dosage: 160/4.5 MCG 2 PUFFS IN THE MORNING AND 2 PUFFS IN THE EVENING, TWO TIMES A DAY
     Route: 055

REACTIONS (4)
  - Product use issue [Unknown]
  - Circumstance or information capable of leading to medication error [Unknown]
  - Asthma [Unknown]
  - Productive cough [Unknown]
